FAERS Safety Report 24963061 (Version 1)
Quarter: 2025Q1

REPORT INFORMATION
  Report Type: Spontaneous
  Country: US (occurrence: US)
  Receive Date: 20250213
  Receipt Date: 20250213
  Transmission Date: 20250409
  Serious: Yes (Other)
  Sender: BRISTOL-MYERS SQUIBB COMPANY
  Company Number: US-BRISTOL-MYERS SQUIBB COMPANY-2025-019427

PATIENT
  Age: 82 Year
  Sex: Male

DRUGS (4)
  1. ELIQUIS [Suspect]
     Active Substance: APIXABAN
     Indication: Atrial fibrillation
  2. ORGOVYX [Suspect]
     Active Substance: RELUGOLIX
     Indication: Prostate cancer
     Route: 048
     Dates: start: 20240628
  3. ORGOVYX [Suspect]
     Active Substance: RELUGOLIX
     Route: 048
  4. ERLEADA [Concomitant]
     Active Substance: APALUTAMIDE
     Indication: Product used for unknown indication

REACTIONS (2)
  - Haematochezia [Unknown]
  - Erythema [Unknown]
